FAERS Safety Report 14584579 (Version 2)
Quarter: 2022Q1

REPORT INFORMATION
  Report Type: Spontaneous
  Country: FR (occurrence: FR)
  Receive Date: 20180301
  Receipt Date: 20220225
  Transmission Date: 20220423
  Serious: Yes (Hospitalization)
  Sender: FDA-Public Use
  Company Number: FR-AFSSAPS-TO20172970

PATIENT
  Age: 74 Year
  Sex: Male
  Weight: 75 kg

DRUGS (3)
  1. VALSARTAN [Suspect]
     Active Substance: VALSARTAN
     Indication: Hypertension
     Dosage: 80 MG, DAILY
     Route: 048
     Dates: start: 20170615
  2. HERBALS [Suspect]
     Active Substance: HERBALS
     Indication: Arthralgia
     Dosage: 2 DF, DAILY
     Route: 048
  3. MONASCUS PURPUREUS [Suspect]
     Active Substance: RED YEAST
     Indication: Dyslipidaemia
     Dosage: 1 DF, DAILY
     Route: 048

REACTIONS (1)
  - Cerebrovascular accident [Recovered/Resolved with Sequelae]

NARRATIVE: CASE EVENT DATE: 20171012
